FAERS Safety Report 8492360-X (Version None)
Quarter: 2012Q3

REPORT INFORMATION
  Report Type: 
  Country: None (occurrence: None)
  Receive Date: 20120706
  Receipt Date: 20120628
  Transmission Date: 20120928
  Serious: Yes (Other)
  Sender: FDA-Public Use
  Company Number: CA-ROCHE-1084037

PATIENT
  Sex: Male

DRUGS (1)
  1. XOLAIR [Suspect]
     Indication: ASTHMA
     Route: 058
     Dates: start: 20111019

REACTIONS (5)
  - OROPHARYNGEAL PAIN [None]
  - ASTHMA [None]
  - COUGH [None]
  - TIBIA FRACTURE [None]
  - NASOPHARYNGITIS [None]
